FAERS Safety Report 7362003-7 (Version None)
Quarter: 2011Q1

REPORT INFORMATION
  Report Type: 
  Country: None (occurrence: None)
  Receive Date: 20110318
  Receipt Date: 20110317
  Transmission Date: 20110831
  Serious: Yes (Death, Other)
  Sender: FDA-Public Use
  Company Number: JP-ELI_LILLY_AND_COMPANY-JP201103003067

PATIENT
  Age: 82 Year
  Sex: Male
  Weight: 86 kg

DRUGS (6)
  1. PARIET [Concomitant]
     Indication: PROPHYLAXIS AGAINST GASTROINTESTINAL ULCER
     Dosage: 10 MG, DAILY (1/D)
     Route: 048
  2. BYETTA [Suspect]
     Indication: DIABETES MELLITUS
     Dosage: 5 UG, 2/D
     Route: 058
     Dates: start: 20110131
  3. ASPIRIN [Concomitant]
     Indication: CEREBRAL INFARCTION
     Dosage: 100 MG, DAILY (1/D)
     Route: 048
  4. METFORMIN HYDROCHLORIDE [Concomitant]
     Route: 065
  5. WARFARIN POTASSIUM [Concomitant]
     Indication: ARTERIOSCLEROSIS OBLITERANS
     Dosage: 1 UG, DAILY (1/D)
     Route: 048
  6. AMARYL [Concomitant]
     Indication: DIABETES MELLITUS
     Dosage: 1 MG, 2/D
     Route: 048

REACTIONS (2)
  - DEATH [None]
  - GASTRIC HAEMORRHAGE [None]
